FAERS Safety Report 5731031-7 (Version None)
Quarter: 2008Q2

REPORT INFORMATION
  Report Type: 
  Country: None (occurrence: None)
  Receive Date: 20080507
  Receipt Date: 20080425
  Transmission Date: 20081010
  Serious: Yes (Other)
  Sender: FDA-Public Use
  Company Number: JP-GENENTECH-258043

PATIENT
  Age: 63 Year
  Sex: Female

DRUGS (4)
  1. AVASTIN [Suspect]
     Indication: COLON CANCER
     Dosage: 200 MG, Q2W
     Route: 041
     Dates: start: 20080221
  2. IRINOTECAN HCL [Suspect]
     Indication: COLON CANCER
     Route: 041
  3. FLUOROURACIL [Suspect]
     Indication: COLON CANCER
     Route: 042
  4. ISOVORIN [Suspect]
     Indication: COLON CANCER
     Route: 041

REACTIONS (3)
  - DELUSION [None]
  - HEADACHE [None]
  - SNEEZING [None]
